FAERS Safety Report 12502111 (Version 1)
Quarter: 2016Q2

REPORT INFORMATION
  Report Type: Spontaneous
  Country: US (occurrence: US)
  Receive Date: 20160627
  Receipt Date: 20160627
  Transmission Date: 20160815
  Serious: No
  Sender: FDA-Public Use
  Company Number: US-009507513-1107USA00228

PATIENT
  Sex: Female

DRUGS (2)
  1. DIGOXIN. [Concomitant]
     Active Substance: DIGOXIN
  2. PRINIVIL [Suspect]
     Active Substance: LISINOPRIL
     Route: 048

REACTIONS (2)
  - Oligohydramnios [Unknown]
  - Exposure during pregnancy [Recovered/Resolved]
